FAERS Safety Report 16025940 (Version 1)
Quarter: 2019Q1

REPORT INFORMATION
  Report Type: Spontaneous
  Country: US (occurrence: US)
  Receive Date: 20190302
  Receipt Date: 20190302
  Transmission Date: 20190418
  Serious: Yes (Hospitalization, Other)
  Sender: FDA-Public Use
  Company Number: US-ACCORD-110821

PATIENT
  Age: 32 Year
  Sex: Female

DRUGS (10)
  1. MYCOPHENOLIC ACID. [Suspect]
     Active Substance: MYCOPHENOLIC ACID
     Indication: STIFF PERSON SYNDROME
     Dosage: TITRATED UP TO A TARGET DOSE OF 1500 MG/D
  2. DIAZEPAM. [Suspect]
     Active Substance: DIAZEPAM
     Indication: ANXIETY
     Dosage: 5 MG 3 TIMES A DAY
  3. PROPRANOLOL [Concomitant]
     Active Substance: PROPRANOLOL HYDROCHLORIDE
     Dosage: 60 MG DAILY
  4. BUSPIRONE [Suspect]
     Active Substance: BUSPIRONE HYDROCHLORIDE
     Indication: ANXIETY
     Dosage: 15 MG 3 TIMES A DAY
  5. SERTRALINE [Suspect]
     Active Substance: SERTRALINE HYDROCHLORIDE
     Indication: ANXIETY
     Dosage: 100 MG DAILY
  6. TIZANIDINE. [Suspect]
     Active Substance: TIZANIDINE
     Indication: ANXIETY
     Dosage: 4 MG 3 TIMES A DAY
  7. PROPOFOL. [Concomitant]
     Active Substance: PROPOFOL
     Dosage: INFUSION RATE (25MCG/KG/MIN)
  8. GABAPENTIN. [Suspect]
     Active Substance: GABAPENTIN
     Indication: ANXIETY
     Dosage: 3 TIMES A DAY
  9. LACOSAMIDE. [Concomitant]
     Active Substance: LACOSAMIDE
     Dosage: 200 MG TWICE DAILY
  10. HYDROCODONE/PARACETAMOL [Suspect]
     Active Substance: ACETAMINOPHEN\HYDROCODONE BITARTRATE
     Indication: ANXIETY
     Dosage: 5-325 MG 1-2 TIMES DAILY

REACTIONS (5)
  - Serotonin syndrome [None]
  - Stiff person syndrome [Recovered/Resolved]
  - Off label use [Unknown]
  - Multiple organ dysfunction syndrome [None]
  - Neuroleptic malignant syndrome [None]
